FAERS Safety Report 8739945 (Version 2)
Quarter: 2012Q4

REPORT INFORMATION
  Report Type: Report from Study
  Country: US (occurrence: US)
  Receive Date: 20120823
  Receipt Date: 20121120
  Transmission Date: 20130627
  Serious: Yes (Other)
  Sender: FDA-Public Use
  Company Number: US-ABBOTT-12P-163-0969278-00

PATIENT
  Age: 23 None
  Sex: Female

DRUGS (2)
  1. HUMIRA 40 MG/0.8 ML PEN [Suspect]
     Indication: RHEUMATOID ARTHRITIS
     Dosage: 0.8NK SQ Q 2 WEEKS
     Dates: start: 20120424, end: 20120810
  2. GARDASIL [Suspect]
     Indication: IMMUNISATION
     Dates: start: 20120813

REACTIONS (14)
  - Joint stiffness [Recovered/Resolved]
  - Myalgia [Recovered/Resolved]
  - Myalgia [Recovered/Resolved]
  - Pain of skin [Recovered/Resolved]
  - Kidney infection [Recovered/Resolved]
  - Cystitis [Recovered/Resolved]
  - Musculoskeletal stiffness [Recovered/Resolved]
  - Drug effect delayed [Recovered/Resolved]
  - Upper respiratory tract infection [Recovered/Resolved]
  - Feeling abnormal [Unknown]
  - Hyperaesthesia [Unknown]
  - Peripheral coldness [Unknown]
  - Papilloma viral infection [Not Recovered/Not Resolved]
  - Breast pain [Not Recovered/Not Resolved]
